FAERS Safety Report 16535154 (Version 1)
Quarter: 2019Q3

REPORT INFORMATION
  Report Type: Spontaneous
  Country: US (occurrence: US)
  Receive Date: 20190705
  Receipt Date: 20190705
  Transmission Date: 20191004
  Serious: Yes (Other)
  Sender: FDA-Public Use
  Company Number: US-AVADEL LEGACY PHARMACEUTICALS, LLC-2018AVA00501

PATIENT
  Age: 78 Year
  Sex: Male
  Weight: 84 kg

DRUGS (26)
  1. CLOPIDOGREL [Concomitant]
     Active Substance: CLOPIDOGREL BISULFATE
     Dosage: 75 MG, 1X/DAY
     Route: 048
  2. GLIPIZIDE. [Concomitant]
     Active Substance: GLIPIZIDE
     Dosage: 10 MG, 1X/DAY
     Route: 048
  3. LISINOPRIL. [Concomitant]
     Active Substance: LISINOPRIL
     Dosage: 10 MG, 1X/DAY
     Route: 048
  4. ROCURONIUM [Concomitant]
     Active Substance: ROCURONIUM BROMIDE
     Dosage: 5 MG, ONCE
     Route: 042
     Dates: start: 20181126, end: 20181126
  5. ASPIRIN EC [Concomitant]
     Active Substance: ASPIRIN
     Dosage: 81 MG, 1X/DAY
     Route: 048
  6. ROCURONIUM [Concomitant]
     Active Substance: ROCURONIUM BROMIDE
     Dosage: 25 MG, ONCE
     Route: 042
     Dates: start: 20181126, end: 20181126
  7. PROPOFOL. [Concomitant]
     Active Substance: PROPOFOL
     Dosage: 40 MG, ONCE
     Route: 042
     Dates: start: 20181126, end: 20181126
  8. GLYCOPYRROLATE. [Concomitant]
     Active Substance: GLYCOPYRROLATE
     Dosage: 0.2 MG, ONCE
     Route: 042
     Dates: start: 20181126, end: 20181126
  9. AMLODIPINE [Concomitant]
     Active Substance: AMLODIPINE BESYLATE
     Dosage: 5 MG, 1X/DAY
     Route: 048
  10. ATORVASTATIN [Concomitant]
     Active Substance: ATORVASTATIN
     Dosage: 40 MG, 1X/DAY
     Route: 048
  11. BLOXIVERZ [Suspect]
     Active Substance: NEOSTIGMINE METHYLSULFATE
     Indication: ANAESTHESIA REVERSAL
     Dosage: 3 MG, ONCE
     Route: 042
     Dates: start: 20181126, end: 20181126
  12. BLOXIVERZ [Suspect]
     Active Substance: NEOSTIGMINE METHYLSULFATE
     Dosage: 2 MG, ONCE
     Route: 042
     Dates: start: 20181126, end: 20181126
  13. FENTANYL. [Concomitant]
     Active Substance: FENTANYL
     Dosage: 100 ?G, ONCE
     Route: 042
     Dates: start: 20181126, end: 20181126
  14. ONDANSETRON [Concomitant]
     Active Substance: ONDANSETRON
     Dosage: 4 MG, ONCE
     Route: 042
     Dates: start: 20181126, end: 20181126
  15. SUCCINYLCHOLINE [Concomitant]
     Active Substance: SUCCINYLCHOLINE
     Dosage: 80 MG, ONCE
     Route: 042
     Dates: start: 20181126, end: 20181126
  16. FAMOTIDINE. [Concomitant]
     Active Substance: FAMOTIDINE
     Dosage: 20 MG, ONCE
     Route: 042
     Dates: start: 20181126, end: 20181126
  17. ETOMIDATE. [Concomitant]
     Active Substance: ETOMIDATE
     Dosage: 10 MG, ONCE
     Route: 042
     Dates: start: 20181126, end: 20181126
  18. RANOLAZINE XL [Concomitant]
     Dosage: 1000 MG, 2X/DAY
     Route: 048
  19. TAMSULOSIN [Concomitant]
     Active Substance: TAMSULOSIN
     Dosage: 0.4 MG, 1X/DAY
     Route: 048
  20. ACETAMINOPHEN. [Concomitant]
     Active Substance: ACETAMINOPHEN
     Dosage: 1000 MG, ONCE
     Route: 042
     Dates: start: 20181126, end: 20181126
  21. FUROSEMIDE. [Concomitant]
     Active Substance: FUROSEMIDE
     Dosage: 200 MG, 1X/DAY
     Route: 048
  22. GABAPENTIN. [Concomitant]
     Active Substance: GABAPENTIN
     Dosage: 100 MG, 1X/DAY
     Route: 048
  23. INSULIN DETEMIR [Concomitant]
     Active Substance: INSULIN DETEMIR
     Dosage: 20 U, 1X/DAY AT BEDTIME
     Route: 058
  24. CEFTRIAXONE. [Concomitant]
     Active Substance: CEFTRIAXONE
     Dosage: 1 G, ONCE
     Route: 042
     Dates: start: 20181126, end: 20181126
  25. ISOSORBIDE MONITRATE [Concomitant]
     Dosage: 60 MG, 1X/DAY
     Route: 048
  26. METOPROLOL TARTRATE. [Concomitant]
     Active Substance: METOPROLOL TARTRATE
     Dosage: 25 MG, 2X/DAY
     Route: 048

REACTIONS (1)
  - Drug ineffective [Recovered/Resolved]

NARRATIVE: CASE EVENT DATE: 20181126
